FAERS Safety Report 4660621-8 (Version None)
Quarter: 2005Q2

REPORT INFORMATION
  Report Type: 
  Country: None (occurrence: None)
  Receive Date: 20050425
  Receipt Date: 20041130
  Transmission Date: 20051028
  Serious: No
  Sender: FDA-Public Use
  Company Number: US102615

PATIENT
  Age: 68 Year
  Sex: Male
  Weight: 104 kg

DRUGS (14)
  1. SENSIPAR [Suspect]
     Indication: HYPERPARATHYROIDISM SECONDARY
     Dosage: 60 MG, 1 IN 1 DAYS, PO
     Route: 048
     Dates: start: 20040901
  2. ACETAMINOPHEN [Concomitant]
  3. ACETYLSALICYLIC ACID [Concomitant]
  4. EPOGEN [Concomitant]
  5. DIGITOXIN TAB [Concomitant]
  6. ISOSORBIDE MONONITRATE [Concomitant]
  7. PRAVASTATIN SODIUM [Concomitant]
  8. ACETAMINOPHEN AND OXYCODONE HCL [Concomitant]
  9. ALPRAZOLAM [Concomitant]
  10. ALUMINUM HYDROXIDE GEL [Concomitant]
  11. EQUATE [Concomitant]
  12. PHOSLO [Concomitant]
  13. SODIUM FERRIC GLUCONATE COMPLEX [Concomitant]
  14. PARICALCITOL [Concomitant]

REACTIONS (2)
  - MUSCLE SPASMS [None]
  - WEIGHT INCREASED [None]
